FAERS Safety Report 5214162-X (Version None)
Quarter: 2007Q1

REPORT INFORMATION
  Report Type: 
  Country: None (occurrence: None)
  Receive Date: 20070122
  Receipt Date: 20070108
  Transmission Date: 20070707
  Serious: Yes (Life-Threatening, Hospitalization)
  Sender: FDA-Public Use
  Company Number: FR-AVENTIS-200710173FR

PATIENT
  Age: 64 Year
  Sex: Female
  Weight: 71 kg

DRUGS (6)
  1. DIAMOX                             /00016901/ [Suspect]
     Route: 048
  2. LASILIX                            /00032601/ [Suspect]
     Route: 048
  3. ISOPTIN [Suspect]
     Route: 048
     Dates: start: 20060829, end: 20060830
  4. PREVISCAN                          /00789001/ [Concomitant]
     Route: 048
     Dates: start: 20060825, end: 20060830
  5. SPASFON                            /00934601/ [Concomitant]
     Route: 048
     Dates: start: 20060825, end: 20060830
  6. PREDNISOLONE [Concomitant]
     Route: 048
     Dates: start: 20060825, end: 20060830

REACTIONS (5)
  - DEHYDRATION [None]
  - HEPATIC FAILURE [None]
  - HYPOTENSION [None]
  - HYPOVOLAEMIC SHOCK [None]
  - RENAL FAILURE ACUTE [None]
